FAERS Safety Report 9565457 (Version 1)
Quarter: 2013Q3

REPORT INFORMATION
  Report Type: Spontaneous
  Country: US (occurrence: US)
  Receive Date: 20130930
  Receipt Date: 20130930
  Transmission Date: 20140515
  Serious: No
  Sender: FDA-Public Use
  Company Number: US-BAYER-2013-117580

PATIENT
  Age: 55 Year
  Sex: Female

DRUGS (2)
  1. ALEVE CAPLET [Suspect]
     Indication: HEADACHE
     Dosage: UNK,DF
     Route: 048
  2. ALEVE CAPLET [Suspect]
     Indication: MIGRAINE

REACTIONS (1)
  - Drug ineffective [None]
